FAERS Safety Report 17837459 (Version 1)
Quarter: 2020Q2

REPORT INFORMATION
  Report Type: Spontaneous
  Country: US (occurrence: US)
  Receive Date: 20200528
  Receipt Date: 20200528
  Transmission Date: 20200714
  Serious: No
  Sender: FDA-Public Use
  Company Number: US-BAUSCH-BL-2020-015074

PATIENT
  Sex: Male

DRUGS (1)
  1. JUBLIA [Suspect]
     Active Substance: EFINACONAZOLE
     Indication: ONYCHOMYCOSIS
     Dosage: APPROXIMATELY 8 MONTHS AGO
     Route: 061
     Dates: start: 2019

REACTIONS (2)
  - Nail discolouration [Not Recovered/Not Resolved]
  - Patient dissatisfaction with treatment [Unknown]
